FAERS Safety Report 7623407-8 (Version None)
Quarter: 2011Q3

REPORT INFORMATION
  Report Type: 
  Country: None (occurrence: None)
  Receive Date: 20110720
  Receipt Date: 20110708
  Transmission Date: 20111222
  Serious: Yes (Death)
  Sender: FDA-Public Use
  Company Number: US-JNJFOC-20110704814

PATIENT
  Age: 24 Year
  Sex: Female

DRUGS (5)
  1. TYLENOL-500 [Suspect]
     Indication: SUICIDE ATTEMPT
     Route: 065
  2. OXYCONTIN [Concomitant]
     Route: 065
  3. BENZODIAZEPINE DERIVATIVES [Concomitant]
     Route: 065
  4. TYLENOL-500 [Suspect]
     Route: 065
  5. NSAID [Concomitant]
     Route: 065

REACTIONS (3)
  - COMPLETED SUICIDE [None]
  - ASPHYXIA [None]
  - MULTIPLE DRUG OVERDOSE [None]
